FAERS Safety Report 6882356-3 (Version None)
Quarter: 2010Q3

REPORT INFORMATION
  Report Type: 
  Country: None (occurrence: None)
  Receive Date: 20100729
  Receipt Date: 20100604
  Transmission Date: 20110219
  Serious: No
  Sender: FDA-Public Use
  Company Number: US-MYLANLABS-2010S1006766

PATIENT
  Age: 66 Year
  Sex: Female

DRUGS (7)
  1. LEVOTHYROXINE SODIUM [Suspect]
     Indication: THYROIDECTOMY
     Dates: start: 20090101
  2. LEVOTHYROXINE SODIUM [Suspect]
     Indication: THYROID CANCER
     Dates: start: 20090101
  3. VITAMIN D [Concomitant]
  4. FISH OIL [Concomitant]
  5. PROBIOTICA [Concomitant]
  6. VITAMIN B COMPLEX CAP [Concomitant]
  7. COENZYME Q10 [Concomitant]

REACTIONS (3)
  - DEPRESSED MOOD [None]
  - TEMPERATURE INTOLERANCE [None]
  - THROAT TIGHTNESS [None]
